FAERS Safety Report 15956158 (Version 1)
Quarter: 2020Q3

REPORT INFORMATION
  Report Type: Report from Study
  Country: DE (occurrence: DE)
  Receive Date: 20190213
  Receipt Date: 20190213
  Transmission Date: 20201105
  Serious: Yes (Hospitalization)
  Sender: FDA-Public Use
  Company Number: DE-JNJFOC-20190103346

PATIENT
  Age: 5 Decade
  Sex: Female
  Weight: 84.2 kg

DRUGS (4)
  1. NIVOLUMAB [Suspect]
     Active Substance: NIVOLUMAB
     Indication: LEIOMYOSARCOMA METASTATIC
     Dosage: THERAPY CYCLE 4 TO 11
     Route: 065
     Dates: start: 20180822, end: 20190125
  2. TRABECTEDIN [Suspect]
     Active Substance: TRABECTEDIN
     Indication: LEIOMYOSARCOMA METASTATIC
     Dosage: CYCLE 1 TO 11
     Route: 042
     Dates: start: 20180614, end: 20190125
  3. TRABECTEDIN [Suspect]
     Active Substance: TRABECTEDIN
     Route: 042
  4. TRABECTEDIN [Suspect]
     Active Substance: TRABECTEDIN
     Route: 042

REACTIONS (2)
  - Pulmonary embolism [Recovering/Resolving]
  - Abdominal pain upper [Recovered/Resolved]

NARRATIVE: CASE EVENT DATE: 20190102
